FAERS Safety Report 25017447 (Version 1)
Quarter: 2025Q1

REPORT INFORMATION
  Report Type: Spontaneous
  Country: US (occurrence: None)
  Receive Date: 20250226
  Receipt Date: 20250226
  Transmission Date: 20250409
  Serious: No
  Sender: FDA-CTU
  Company Number: None

PATIENT
  Age: 67 Year
  Sex: Female

DRUGS (4)
  1. LENALIDOMIDE [Suspect]
     Active Substance: LENALIDOMIDE
     Indication: Plasma cell myeloma
     Dosage: FREQUENCY : DAILY;?
     Route: 048
     Dates: start: 20250131, end: 20250207
  2. VELCADE [Suspect]
     Active Substance: BORTEZOMIB
  3. DECADRON [Suspect]
     Active Substance: DEXAMETHASONE
  4. ZOMETA [Concomitant]
     Active Substance: ZOLEDRONIC ACID

REACTIONS (2)
  - Liver function test increased [None]
  - Rash [None]

NARRATIVE: CASE EVENT DATE: 20250205
